FAERS Safety Report 4918070-0 (Version None)
Quarter: 2006Q1

REPORT INFORMATION
  Report Type: 
  Country: None (occurrence: None)
  Receive Date: 20060215
  Receipt Date: 20060207
  Transmission Date: 20060701
  Serious: Yes (Hospitalization)
  Sender: FDA-Public Use
  Company Number: 2006-02-0232

PATIENT
  Sex: Female

DRUGS (4)
  1. PEG-INTRON [Suspect]
     Indication: HEPATITIS C
     Dosage: 30 MCG QW SUBCUTANEOUS
     Route: 058
     Dates: start: 20050620
  2. REBETOL [Suspect]
     Indication: CHRONIC HEPATITIS
     Dosage: 200 MG ORAL
     Route: 048
     Dates: start: 20050620
  3. GASTER [Concomitant]
  4. ANTICONVULSANTS (NOS) [Concomitant]

REACTIONS (1)
  - BLOOD CREATINE PHOSPHOKINASE INCREASED [None]
